FAERS Safety Report 10195718 (Version 1)
Quarter: 2014Q2

REPORT INFORMATION
  Report Type: Report from Study
  Country: RS (occurrence: RS)
  Receive Date: 20140527
  Receipt Date: 20140527
  Transmission Date: 20141212
  Serious: Yes (Other)
  Sender: FDA-Public Use
  Company Number: RS-ROCHE-1408093

PATIENT
  Age: 72 Year
  Sex: Male
  Weight: 79 kg

DRUGS (1)
  1. CAPECITABINE [Suspect]
     Indication: RECTAL ADENOCARCINOMA
     Route: 065
     Dates: start: 20080125, end: 20080203

REACTIONS (2)
  - Nausea [Unknown]
  - Disease recurrence [Unknown]
